FAERS Safety Report 5994019-7 (Version None)
Quarter: 2008Q4

REPORT INFORMATION
  Report Type: 
  Country: None (occurrence: None)
  Receive Date: 20081212
  Receipt Date: 20080902
  Transmission Date: 20090506
  Serious: No
  Sender: FDA-Public Use
  Company Number: US-ABBOTT-08P-163-0470865-00

PATIENT
  Sex: Female
  Weight: 59.928 kg

DRUGS (4)
  1. HUMIRA [Suspect]
     Indication: PSORIATIC ARTHROPATHY
     Route: 058
     Dates: start: 20060801
  2. CETIRIZINE HYDROCHLORIDE [Concomitant]
     Indication: SEASONAL ALLERGY
     Route: 048
  3. ARTHROTEC [Concomitant]
     Indication: ANTIINFLAMMATORY THERAPY
     Route: 048
  4. VITAMINS [Concomitant]
     Indication: VITAMIN SUPPLEMENTATION
     Route: 048

REACTIONS (2)
  - ACCIDENTAL EXPOSURE [None]
  - PSORIATIC ARTHROPATHY [None]
